FAERS Safety Report 20795880 (Version 2)
Quarter: 2022Q3

REPORT INFORMATION
  Report Type: Report from Study
  Country: US (occurrence: US)
  Receive Date: 20220506
  Receipt Date: 20220810
  Transmission Date: 20221026
  Serious: Yes (Other)
  Sender: FDA-Public Use
  Company Number: US-REGENERON PHARMACEUTICALS, INC.-2022-059768

PATIENT
  Sex: Male

DRUGS (1)
  1. PRALUENT [Suspect]
     Active Substance: ALIROCUMAB
     Indication: Cardiovascular event prophylaxis
     Dosage: 75 MG, Q2W
     Route: 058

REACTIONS (3)
  - Neuropathy peripheral [Recovered/Resolved with Sequelae]
  - Dyskinesia [Recovered/Resolved]
  - Muscle spasms [Recovered/Resolved]
